FAERS Safety Report 7919358-1 (Version None)
Quarter: 2011Q4

REPORT INFORMATION
  Report Type: 
  Country: None (occurrence: None)
  Receive Date: 20111115
  Receipt Date: 20111115
  Transmission Date: 20120403
  Serious: Yes (Hospitalization)
  Sender: FDA-Public Use
  Company Number: None

PATIENT
  Sex: Female
  Weight: 59.87 kg

DRUGS (2)
  1. CISPLATIN [Suspect]
     Dosage: 122 MG
     Dates: end: 20111103
  2. TAXOL [Suspect]
     Dosage: 220 MG
     Dates: end: 20111102

REACTIONS (13)
  - GRAND MAL CONVULSION [None]
  - FALL [None]
  - LOSS OF CONSCIOUSNESS [None]
  - ASTHENIA [None]
  - SYNCOPE [None]
  - INCOHERENT [None]
  - FOAMING AT MOUTH [None]
  - PAIN [None]
  - EYE MOVEMENT DISORDER [None]
  - AGGRESSION [None]
  - MENTAL STATUS CHANGES [None]
  - HYPOTENSION [None]
  - HYPONATRAEMIA [None]
